FAERS Safety Report 18103134 (Version 1)
Quarter: 2020Q3

REPORT INFORMATION
  Report Type: Spontaneous
  Country: US (occurrence: US)
  Receive Date: 20200731
  Receipt Date: 20200731
  Transmission Date: 20201103
  Serious: Yes (Other)
  Sender: FDA-Public Use
  Company Number: None

PATIENT
  Age: 40 Month
  Sex: Female
  Weight: 76.5 kg

DRUGS (1)
  1. EMGALITY [Suspect]
     Active Substance: GALCANEZUMAB-GNLM
     Indication: MIGRAINE
     Dosage: ?          QUANTITY:1 INJECTION(S);OTHER FREQUENCY:MONTHLY;?
     Route: 058
     Dates: start: 20200501, end: 20200701

REACTIONS (4)
  - Insomnia [None]
  - Suicidal ideation [None]
  - Dyspnoea [None]
  - Confusional state [None]

NARRATIVE: CASE EVENT DATE: 20200520
